FAERS Safety Report 7146401-2 (Version None)
Quarter: 2010Q4

REPORT INFORMATION
  Report Type: 
  Country: None (occurrence: None)
  Receive Date: 20101208
  Receipt Date: 20100511
  Transmission Date: 20110411
  Serious: No
  Sender: FDA-Public Use
  Company Number: US-BRISTOL-MYERS SQUIBB COMPANY-15103088

PATIENT
  Age: 66 Year
  Sex: Male

DRUGS (7)
  1. METFORMIN HCL [Suspect]
     Indication: TYPE 2 DIABETES MELLITUS
     Route: 048
  2. LISINOPRIL [Suspect]
     Indication: TYPE 2 DIABETES MELLITUS
     Route: 048
  3. PRAVACHOL [Suspect]
     Indication: TYPE 2 DIABETES MELLITUS
     Route: 048
  4. DIABETA [Suspect]
     Indication: TYPE 2 DIABETES MELLITUS
     Dosage: TABS
     Route: 048
  5. PIOGLITAZONE HCL [Suspect]
     Indication: TYPE 2 DIABETES MELLITUS
     Route: 048
  6. LANTUS [Concomitant]
     Dates: start: 20100401
  7. NEBIVOLOL HCL [Concomitant]
     Dates: start: 20100401

REACTIONS (1)
  - DIABETES MELLITUS INADEQUATE CONTROL [None]
